FAERS Safety Report 23347615 (Version 1)
Quarter: 2023Q4

REPORT INFORMATION
  Report Type: Spontaneous
  Country: US (occurrence: None)
  Receive Date: 20231227
  Receipt Date: 20231227
  Transmission Date: 20240110
  Serious: No
  Sender: FDA-Public Use
  Company Number: None

PATIENT

DRUGS (1)
  1. LORAZEPAM [Suspect]
     Active Substance: LORAZEPAM

REACTIONS (8)
  - Product design issue [None]
  - Product label issue [None]
  - Product label confusion [None]
  - Device use issue [None]
  - Product administration error [None]
  - Product preparation error [None]
  - Wrong dose [None]
  - Wrong drug [None]
